FAERS Safety Report 4539413-6 (Version None)
Quarter: 2004Q4

REPORT INFORMATION
  Report Type: 
  Country: None (occurrence: None)
  Receive Date: 20041228
  Receipt Date: 20041217
  Transmission Date: 20050328
  Serious: Yes (Other)
  Sender: FDA-Public Use
  Company Number: CA-ROCHE-389784

PATIENT
  Age: 10 Year
  Sex: Male
  Weight: 19.5 kg

DRUGS (14)
  1. TAMIFLU [Suspect]
     Indication: INFLUENZA
     Route: 048
     Dates: start: 20041213
  2. PREVACID [Concomitant]
     Route: 048
  3. DOMPERIDONE [Concomitant]
     Route: 048
  4. ALBUTEROL [Concomitant]
     Indication: ASTHMA
     Dosage: FORM REPORTED AS METERED DOSE INHALER
     Route: 055
  5. FLOVENT [Concomitant]
     Indication: ASTHMA
     Route: 055
  6. DANTRIUM [Concomitant]
     Route: 048
  7. BACLOFEN [Concomitant]
     Dosage: 7.5MG EVERY MORNING 5MG AT NIGHT
     Route: 048
  8. TIZANIDINE HCL [Concomitant]
     Dosage: 0.25MG EVERY MORNING 0.75MG EVENING
  9. PHENOBARBITAL TAB [Concomitant]
     Dosage: DRUG FORM REPORTED AS ORAL LIQUID 30MG MORNING 35MG EVENING
     Route: 048
  10. PYRIDOXINE HCL [Concomitant]
     Route: 048
  11. PEG-LYTE [Concomitant]
     Indication: CONSTIPATION
     Dosage: DOSE FORM REPORTED AS POWDER FOR RECONSTITUTION
     Route: 048
  12. ACETAMINOPHEN [Concomitant]
     Dosage: PRN
     Route: 048
  13. CLINDAMYCIN HCL [Concomitant]
     Indication: INFECTION
     Dosage: DRUG FORM REPORTED AS INTRAVENOUS
     Route: 042
     Dates: start: 20041215
  14. CEFUROXIME [Concomitant]
     Indication: INFECTION
     Dosage: DOSE FORM REPORTED AS INTRAVENOUS
     Route: 042
     Dates: start: 20041215

REACTIONS (1)
  - CARDIAC ARREST [None]
